FAERS Safety Report 5675315-X (Version None)
Quarter: 2008Q2

REPORT INFORMATION
  Report Type: 
  Country: None (occurrence: None)
  Receive Date: 20080307
  Receipt Date: 20070814
  Transmission Date: 20081010
  Serious: Yes (Other)
  Sender: FDA-Public Use
  Company Number: US200708002903

PATIENT
  Sex: Female

DRUGS (3)
  1. GEMZAR [Suspect]
     Indication: NON-SMALL CELL LUNG CANCER
     Dosage: OTHER
     Dates: start: 20070101, end: 20070801
  2. CARBOPLATIN [Concomitant]
  3. COUMADIN [Concomitant]

REACTIONS (1)
  - THROMBOCYTOPENIA [None]
